FAERS Safety Report 17892189 (Version 3)
Quarter: 2020Q3

REPORT INFORMATION
  Report Type: Report from Study
  Country: None (occurrence: US)
  Receive Date: 20200612
  Receipt Date: 20200706
  Transmission Date: 20201103
  Serious: Yes (Other)
  Sender: FDA-Public Use
  Company Number: US-ABBVIE-20K-163-3340345-00

PATIENT
  Age: 19 Year
  Sex: Male
  Weight: 47.67 kg

DRUGS (6)
  1. HUMIRA [Suspect]
     Active Substance: ADALIMUMAB
     Indication: CROHN^S DISEASE
     Route: 058
     Dates: start: 2010, end: 2011
  2. HUMIRA [Suspect]
     Active Substance: ADALIMUMAB
     Route: 058
     Dates: start: 2020
  3. HUMIRA [Suspect]
     Active Substance: ADALIMUMAB
     Indication: CROHN^S DISEASE
     Route: 058
     Dates: start: 202004, end: 2020
  4. HUMIRA [Suspect]
     Active Substance: ADALIMUMAB
     Dosage: DAY 15
     Route: 058
     Dates: start: 20200412, end: 20200412
  5. HUMIRA [Suspect]
     Active Substance: ADALIMUMAB
     Indication: CROHN^S DISEASE
     Route: 058
     Dates: start: 20200329, end: 20200329
  6. AZATHIOPRINE. [Concomitant]
     Active Substance: AZATHIOPRINE
     Indication: CROHN^S DISEASE

REACTIONS (8)
  - Drug specific antibody present [Recovered/Resolved]
  - Vomiting [Recovering/Resolving]
  - Colectomy total [Unknown]
  - Nausea [Recovering/Resolving]
  - Large intestinal ulcer [Recovered/Resolved]
  - Crohn^s disease [Recovered/Resolved]
  - Loss of personal independence in daily activities [Recovering/Resolving]
  - Colostomy [Unknown]

NARRATIVE: CASE EVENT DATE: 201912
